FAERS Safety Report 25110481 (Version 1)
Quarter: 2025Q1

REPORT INFORMATION
  Report Type: Spontaneous
  Country: US (occurrence: US)
  Receive Date: 20250324
  Receipt Date: 20250324
  Transmission Date: 20250408
  Serious: Yes (Hospitalization, Other)
  Sender: ACCORD
  Company Number: US-Accord-472165

PATIENT
  Age: 64 Year
  Sex: Male
  Weight: 86.8 kg

DRUGS (28)
  1. CARBOPLATIN [Suspect]
     Active Substance: CARBOPLATIN
     Indication: Pleural mesothelioma
     Route: 042
     Dates: start: 20221031, end: 20221031
  2. PEMETREXED [Suspect]
     Active Substance: PEMETREXED
     Indication: Pleural mesothelioma
     Route: 042
     Dates: start: 20221031, end: 20221031
  3. AMLODIPINE [Concomitant]
     Active Substance: AMLODIPINE BESYLATE
     Dates: start: 20160429, end: 20230130
  4. DULOXETINE [Concomitant]
     Active Substance: DULOXETINE
     Dates: start: 20171116
  5. OLANZAPINE [Concomitant]
     Active Substance: OLANZAPINE
     Dates: start: 20220805
  6. DICLOFENAC [Concomitant]
     Active Substance: DICLOFENAC
     Dates: start: 20220808
  7. LIDOCAINE [Concomitant]
     Active Substance: LIDOCAINE
     Dates: start: 20220808, end: 20230306
  8. FOLIC ACID [Concomitant]
     Active Substance: FOLIC ACID
     Dates: start: 20221007
  9. ONDANSETRON [Concomitant]
     Active Substance: ONDANSETRON
     Dates: start: 20220805, end: 20230306
  10. POLYETHYLENE GLYCOL 3350 [Concomitant]
     Active Substance: POLYETHYLENE GLYCOL 3350
     Dates: start: 20220707
  11. VITAMINS [Concomitant]
     Active Substance: VITAMINS
     Dates: start: 20131122
  12. ZYRTEC [Concomitant]
     Active Substance: CETIRIZINE HYDROCHLORIDE
     Dates: start: 202206
  13. ESCITALOPRAM OXALATE [Concomitant]
     Active Substance: ESCITALOPRAM OXALATE
     Dates: start: 20221102
  14. FLONASE [Concomitant]
     Active Substance: FLUTICASONE PROPIONATE
     Dates: start: 202206
  15. ALLOPURINOL [Concomitant]
     Active Substance: ALLOPURINOL
     Dates: start: 20221123
  16. PREDNISONE [Concomitant]
     Active Substance: PREDNISONE
     Dates: start: 20221226, end: 20230105
  17. FAMOTIDINE [Concomitant]
     Active Substance: FAMOTIDINE
     Dates: start: 20221226, end: 20230303
  18. CYANOCOBALAMIN [Concomitant]
     Active Substance: CYANOCOBALAMIN
     Dates: start: 20230103, end: 20230103
  19. DECADRON [Concomitant]
     Active Substance: DEXAMETHASONE
     Dates: start: 20221221, end: 20221226
  20. NEURONTIN [Concomitant]
     Active Substance: GABAPENTIN
     Dates: start: 20221222, end: 20230305
  21. HEPARIN [Concomitant]
     Active Substance: HEPARIN SODIUM
     Dates: start: 20221222, end: 20221224
  22. PROTONIX [Concomitant]
     Active Substance: PANTOPRAZOLE SODIUM
     Dates: start: 20221222, end: 20221226
  23. ZOSYN [Concomitant]
     Active Substance: PIPERACILLIN SODIUM\TAZOBACTAM SODIUM
     Dates: start: 20221224, end: 20221225
  24. DELTASONE [Concomitant]
     Active Substance: PREDNISONE
     Dates: start: 20230109, end: 20230120
  25. ALOXI [Concomitant]
     Active Substance: PALONOSETRON HYDROCHLORIDE
     Dates: start: 20221212, end: 20221212
  26. LACTATED RINGERS SOLUTION [Concomitant]
     Active Substance: CALCIUM CHLORIDE\POTASSIUM CHLORIDE\SODIUM CHLORIDE\SODIUM LACTATE
     Dates: start: 20221222, end: 20221222
  27. CARBOPLATIN [Suspect]
     Active Substance: CARBOPLATIN
     Indication: Pleural mesothelioma
     Route: 042
     Dates: start: 20221212, end: 20221212
  28. PEMETREXED [Suspect]
     Active Substance: PEMETREXED
     Indication: Pleural mesothelioma
     Route: 042
     Dates: start: 20221212, end: 20221212

REACTIONS (1)
  - Anaemia [Recovered/Resolved]

NARRATIVE: CASE EVENT DATE: 20221212
